FAERS Safety Report 7641053-7 (Version None)
Quarter: 2011Q3

REPORT INFORMATION
  Report Type: 
  Country: None (occurrence: None)
  Receive Date: 20110728
  Receipt Date: 20110719
  Transmission Date: 20111222
  Serious: Yes (Hospitalization)
  Sender: FDA-Public Use
  Company Number: US-SANOFI-AVENTIS-2011SA046183

PATIENT
  Age: 62 Year
  Sex: Male

DRUGS (7)
  1. FEXOFENADINE HYDROCHLORIDE/PSEUDOEPHEDRINE HYDROCHLORIDE [Suspect]
     Route: 048
     Dates: start: 20080101, end: 20110706
  2. METOPROLOL TARTRATE [Concomitant]
  3. SIMVASTATIN [Concomitant]
  4. CALCIUM CITRATE [Concomitant]
  5. PHENYTOIN [Concomitant]
  6. LISINOPRIL [Concomitant]
  7. ASPIRIN [Concomitant]

REACTIONS (10)
  - CAROTID ARTERY OCCLUSION [None]
  - SOMNOLENCE [None]
  - FEELING ABNORMAL [None]
  - SINUS DISORDER [None]
  - PHOTOSENSITIVITY REACTION [None]
  - VISION BLURRED [None]
  - NYSTAGMUS [None]
  - HEADACHE [None]
  - INSOMNIA [None]
  - VISUAL IMPAIRMENT [None]
